FAERS Safety Report 17737183 (Version 1)
Quarter: 2020Q2

REPORT INFORMATION
  Report Type: Spontaneous
  Country: DE (occurrence: DE)
  Receive Date: 20200502
  Receipt Date: 20200502
  Transmission Date: 20200714
  Serious: Yes (Hospitalization)
  Sender: FDA-Public Use
  Company Number: DE-TEVA-2020-DE-1229302

PATIENT
  Age: 80 Year
  Sex: Male

DRUGS (11)
  1. RISPERIDON [Concomitant]
     Active Substance: RISPERIDONE
  2. METOPROLOL. [Concomitant]
     Active Substance: METOPROLOL
  3. VIGANTOL 1000I.E. VITAMIN D3 [Concomitant]
  4. ULTIBRO BREEZHALER 85MIKROGRAMM/43MIKROGRAMM [Concomitant]
     Dosage: 110 | 50 ?G, 1-0-0-0, MDI
  5. ATORVASTATIN [Concomitant]
     Active Substance: ATORVASTATIN
  6. APIXABAN [Concomitant]
     Active Substance: APIXABAN
  7. SPIRONOLACTONE. [Suspect]
     Active Substance: SPIRONOLACTONE
  8. TORASEMIDE [Suspect]
     Active Substance: TORSEMIDE
  9. IPRAMOL [Concomitant]
     Active Substance: ALBUTEROL SULFATE\IPRATROPIUM BROMIDE
  10. NEUROTRAT S FORTE [Concomitant]
  11. LAMOTRIGIN [Concomitant]
     Active Substance: LAMOTRIGINE

REACTIONS (3)
  - Fatigue [Unknown]
  - Dyspnoea [Unknown]
  - Dehydration [Unknown]
